FAERS Safety Report 4545855-5 (Version None)
Quarter: 2005Q1

REPORT INFORMATION
  Report Type: 
  Country: None (occurrence: None)
  Receive Date: 20050105
  Receipt Date: 20050105
  Transmission Date: 20050727
  Serious: No
  Sender: FDA-Public Use
  Company Number: None

PATIENT
  Sex: Female
  Weight: 56.6996 kg

DRUGS (2)
  1. SOLU-MEDROL [Suspect]
     Indication: INFLAMMATION
     Dosage: FIRST DOSE IV
     Route: 042
     Dates: start: 20041230
  2. SOLU-MEDROL [Suspect]
     Indication: SPINAL CORD DISORDER
     Dosage: FIRST DOSE IV
     Route: 042
     Dates: start: 20041230

REACTIONS (1)
  - BLOOD PRESSURE INCREASED [None]
